FAERS Safety Report 4269796-6 (Version None)
Quarter: 2004Q1

REPORT INFORMATION
  Report Type: 
  Country: None (occurrence: None)
  Receive Date: 20040113
  Receipt Date: 20021230
  Transmission Date: 20041129
  Serious: No
  Sender: FDA-Public Use
  Company Number: 6987

PATIENT
  Age: 52 Year
  Sex: Female

DRUGS (2)
  1. ACYCLOVIR [Suspect]
     Indication: MALARIA PROPHYLAXIS
     Dosage: PO
     Route: 048
  2. PROGUANIL [Suspect]
     Indication: MALARIA PROPHYLAXIS
     Dosage: PO
     Route: 048

REACTIONS (2)
  - INSOMNIA [None]
  - RETINOPATHY [None]
